FAERS Safety Report 8863303 (Version 1)
Quarter: 2012Q4

REPORT INFORMATION
  Report Type: 
  Country: IT (occurrence: IT)
  Receive Date: 20121025
  Receipt Date: 20121025
  Transmission Date: 20130627
  Serious: Yes (Hospitalization)
  Sender: FDA-Public Use
  Company Number: IT-ROCHE-1148564

PATIENT
  Age: 86 Year
  Sex: Female

DRUGS (6)
  1. TORADOL [Suspect]
     Indication: PRODUCT USED FOR UNKNOWN INDICATION
     Dosage: 10/mg/ml solution for injection
     Route: 030
     Dates: start: 20121012, end: 20121014
  2. COUMADIN [Concomitant]
     Route: 065
  3. DELTACORTENE [Concomitant]
     Route: 065
  4. FOLIC ACID [Concomitant]
     Route: 065
  5. LASIX [Concomitant]
     Route: 065
  6. PEPTAZOL [Concomitant]
     Route: 065

REACTIONS (3)
  - Faeces discoloured [Unknown]
  - Malaise [Unknown]
  - Presyncope [Unknown]
